FAERS Safety Report 13844964 (Version 1)
Quarter: 2017Q3

REPORT INFORMATION
  Report Type: Spontaneous
  Country: US (occurrence: US)
  Receive Date: 20170808
  Receipt Date: 20170808
  Transmission Date: 20171127
  Serious: Yes (Other)
  Sender: FDA-Public Use
  Company Number: PHEH2017US023943

PATIENT
  Sex: Female

DRUGS (2)
  1. SUTENT [Suspect]
     Active Substance: SUNITINIB MALATE
     Indication: PRODUCT USED FOR UNKNOWN INDICATION
     Dosage: 50 MG, QD (FOR 28 DAYS ON AND 14 DAYS OFF)
     Route: 065
     Dates: start: 20170708
  2. TASIGNA [Suspect]
     Active Substance: NILOTINIB
     Indication: CHRONIC MYELOID LEUKAEMIA
     Route: 065

REACTIONS (6)
  - Oral pain [Unknown]
  - Metastatic renal cell carcinoma [Unknown]
  - Second primary malignancy [Unknown]
  - Glossodynia [Unknown]
  - Fatigue [Unknown]
  - Headache [Unknown]
